FAERS Safety Report 17837003 (Version 2)
Quarter: 2020Q2

REPORT INFORMATION
  Report Type: Report from Study
  Country: US (occurrence: US)
  Receive Date: 20200528
  Receipt Date: 20200616
  Transmission Date: 20200714
  Serious: Yes (Hospitalization)
  Sender: FDA-Public Use
  Company Number: US-ACTELION-A-NJ2020-205503

PATIENT
  Sex: Male

DRUGS (3)
  1. TRACLEER [Suspect]
     Active Substance: BOSENTAN
     Indication: PULMONARY HYPERTENSION
     Dosage: 15.3 MG, BID
     Route: 048
     Dates: start: 201907
  2. ALBUTEROL HFA [Concomitant]
     Active Substance: ALBUTEROL SULFATE
     Dosage: 90 MCG, Q4HRS
     Dates: start: 201903
  3. SILDENAFIL. [Concomitant]
     Active Substance: SILDENAFIL
     Dosage: 15 MG, TID
     Dates: start: 201903

REACTIONS (1)
  - Tracheitis [Unknown]
